FAERS Safety Report 21937672 (Version 1)
Quarter: 2023Q1

REPORT INFORMATION
  Report Type: Spontaneous
  Country: ES (occurrence: ES)
  Receive Date: 20230201
  Receipt Date: 20230201
  Transmission Date: 20230417
  Serious: Yes (Hospitalization)
  Sender: FDA-Public Use
  Company Number: None

PATIENT
  Age: 42 Year
  Sex: Female

DRUGS (2)
  1. FULVESTRANT [Suspect]
     Active Substance: FULVESTRANT
     Indication: Breast cancer
     Dosage: FULVESTRANT (2925A)
     Dates: start: 20211229, end: 20220305
  2. ABEMACICLIB [Suspect]
     Active Substance: ABEMACICLIB
     Indication: Breast cancer
     Dosage: ABEMACICLIB (9320A)
     Dates: start: 20211229, end: 20220305

REACTIONS (1)
  - Acute interstitial pneumonitis [Recovered/Resolved]

NARRATIVE: CASE EVENT DATE: 20220305
